FAERS Safety Report 8539441-X (Version None)
Quarter: 2012Q3

REPORT INFORMATION
  Report Type: 
  Country: None (occurrence: None)
  Receive Date: 20120726
  Receipt Date: 20120718
  Transmission Date: 20120928
  Serious: Yes (Other)
  Sender: FDA-Public Use
  Company Number: US-JNJFOC-20120516352

PATIENT
  Sex: Female

DRUGS (10)
  1. HYDROXYZINE [Suspect]
     Indication: ANXIETY
     Route: 048
  2. TRAZODONE HYDROCHLORIDE [Suspect]
     Indication: DEPRESSION
     Route: 048
  3. ZOLOFT [Suspect]
     Indication: ANTIDEPRESSANT THERAPY
     Route: 048
  4. VITAMIN AND MINERAL PRENATAL SUPPLEMENT W/ FOLIC ACID CAP [Concomitant]
     Route: 065
  5. TOPAMAX [Suspect]
     Indication: CONVULSION
     Route: 048
     Dates: start: 20060918, end: 20061218
  6. FOLIC ACID [Concomitant]
     Indication: VITAMIN SUPPLEMENTATION
     Route: 065
  7. METFORMIN HYDROCHLORIDE [Suspect]
     Indication: TYPE 2 DIABETES MELLITUS
     Route: 048
  8. TOPAMAX [Suspect]
     Indication: MIGRAINE
     Route: 048
     Dates: start: 20060918, end: 20061218
  9. MIRTAZAPINE [Suspect]
     Indication: DEPRESSION
     Route: 048
  10. RISEDRONATE SODIUM [Concomitant]
     Indication: VITAMIN SUPPLEMENTATION
     Route: 065

REACTIONS (3)
  - EMOTIONAL DISORDER [None]
  - OLIGOHYDRAMNIOS [None]
  - MATERNAL EXPOSURE DURING PREGNANCY [None]
